FAERS Safety Report 24012977 (Version 1)
Quarter: 2024Q2

REPORT INFORMATION
  Report Type: Spontaneous
  Country: AU (occurrence: AU)
  Receive Date: 20240626
  Receipt Date: 20240626
  Transmission Date: 20240717
  Serious: Yes (Other)
  Sender: FDA-Public Use
  Company Number: AU-CIPLA LTD.-2024AU06379

PATIENT

DRUGS (4)
  1. FLUCONAZOLE [Suspect]
     Active Substance: FLUCONAZOLE
     Indication: Tinea capitis
     Dosage: UNK, QD (1 DAY)
     Route: 048
  2. TERBINAFINE [Suspect]
     Active Substance: TERBINAFINE
     Indication: Tinea capitis
     Dosage: 125 MILLIGRAM, QD (1 DAY)
     Route: 048
  3. GRISEOFULVIN [Suspect]
     Active Substance: GRISEOFULVIN
     Indication: Tinea capitis
     Dosage: 500 MILLIGRAM, QD (1 DAY)
     Route: 048
  4. GRISEOFULVIN [Suspect]
     Active Substance: GRISEOFULVIN
     Dosage: 500 MILLIGRAM, QD (1 DAY)
     Route: 048

REACTIONS (2)
  - Treatment failure [Unknown]
  - Off label use [Unknown]
